FAERS Safety Report 5470336-4 (Version None)
Quarter: 2007Q3

REPORT INFORMATION
  Report Type: 
  Country: None (occurrence: None)
  Receive Date: 20070925
  Receipt Date: 20070912
  Transmission Date: 20080115
  Serious: Yes (Hospitalization)
  Sender: FDA-Public Use
  Company Number: 013179

PATIENT
  Age: 39 Year
  Sex: Female

DRUGS (2)
  1. PRIALT [Suspect]
     Indication: DRUG USE FOR UNKNOWN INDICATION
     Dosage: 0.29 UG, ONCE/HOUR, INTRATHECAL; UG, ONCE/HOUR, INTRATHECAL
     Route: 037
     Dates: start: 20070604
  2. ANALGESICS [Concomitant]

REACTIONS (4)
  - ABASIA [None]
  - DRUG WITHDRAWAL SYNDROME [None]
  - MUSCULAR WEAKNESS [None]
  - VISUAL FIELD DEFECT [None]
